FAERS Safety Report 4715084-0 (Version None)
Quarter: 2005Q3

REPORT INFORMATION
  Report Type: 
  Country: None (occurrence: None)
  Receive Date: 20050715
  Receipt Date: 20050708
  Transmission Date: 20060218
  Serious: Yes (Other)
  Sender: FDA-Public Use
  Company Number: US-SANOFI-SYNTHELABO-A03200502071

PATIENT
  Sex: Male

DRUGS (1)
  1. ELIGARD [Suspect]
     Indication: DRUG USE FOR UNKNOWN INDICATION
     Dosage: TWO 22.5 DOSES
     Route: 058
     Dates: start: 20050101, end: 20050101

REACTIONS (3)
  - IATROGENIC INJURY [None]
  - INCORRECT DOSE ADMINISTERED [None]
  - PENIS CARCINOMA [None]
